FAERS Safety Report 5483834-4 (Version None)
Quarter: 2007Q4

REPORT INFORMATION
  Report Type: 
  Country: None (occurrence: None)
  Receive Date: 20071012
  Receipt Date: 20071001
  Transmission Date: 20080405
  Serious: Yes (Death)
  Sender: FDA-Public Use
  Company Number: US-JNJFOC-20071000776

PATIENT
  Age: 4 Year
  Sex: Female

DRUGS (4)
  1. TYLENOL (CAPLET) [Suspect]
     Indication: NASOPHARYNGITIS
  2. SEROQUEL [Suspect]
     Indication: AFFECTIVE DISORDER
  3. DEPAKOTE [Suspect]
     Indication: AFFECTIVE DISORDER
  4. CLONIDINE [Suspect]
     Indication: AFFECTIVE DISORDER

REACTIONS (1)
  - MULTIPLE DRUG OVERDOSE [None]
